FAERS Safety Report 14562116 (Version 1)
Quarter: 2018Q1

REPORT INFORMATION
  Report Type: Spontaneous
  Country: ZA (occurrence: ZA)
  Receive Date: 20180222
  Receipt Date: 20180222
  Transmission Date: 20180509
  Serious: Yes (Death)
  Sender: FDA-Public Use
  Company Number: ZA-MYLANLABS-2018M1011992

PATIENT
  Age: 93 Year
  Sex: Male

DRUGS (8)
  1. BAYER ASPIRIN CARDIO [Interacting]
     Active Substance: ASPIRIN
     Indication: ANTICOAGULANT THERAPY
     Dosage: 100 MG, UNK
     Route: 048
     Dates: start: 201711, end: 201711
  2. MYLAN FUROSEMIDE 40 [Suspect]
     Active Substance: FUROSEMIDE
     Indication: DIURETIC THERAPY
     Dosage: 40 MG, UNK
     Route: 048
     Dates: start: 201711, end: 201711
  3. FINCAR [Interacting]
     Active Substance: FINASTERIDE
     Indication: PROSTATIC DISORDER
     Dosage: 5 MG, UNK
     Route: 048
     Dates: start: 201710, end: 201710
  4. SPIRACTIN                          /00006201/ [Interacting]
     Active Substance: SPIRONOLACTONE
     Indication: DIURETIC THERAPY
     Dosage: 25 MG, UNK
     Route: 048
     Dates: start: 201711, end: 201711
  5. UROMAX                             /00538902/ [Interacting]
     Active Substance: OXYBUTYNIN CHLORIDE
     Indication: PROSTATIC DISORDER
     Dosage: 0.4 MG, UNK
     Route: 048
     Dates: start: 201710, end: 201710
  6. SERDEP                             /00724402/ [Interacting]
     Active Substance: FLUOXETINE HYDROCHLORIDE
     Indication: MENTAL DISORDER
     Dosage: 50 MG, UNK
     Route: 048
     Dates: start: 201711, end: 201711
  7. MONICOR [Interacting]
     Active Substance: ISOSORBIDE MONONITRATE
     Indication: CARDIAC FAILURE
     Dosage: 60 MG, UNK
     Route: 048
     Dates: start: 201711, end: 201711
  8. ATORVASTATIN [Interacting]
     Active Substance: ATORVASTATIN
     Indication: BLOOD CHOLESTEROL
     Dosage: 40 MG, UNK
     Route: 048
     Dates: start: 201711, end: 201711

REACTIONS (2)
  - Death [Fatal]
  - Drug interaction [Unknown]

NARRATIVE: CASE EVENT DATE: 20171204
